FAERS Safety Report 22160429 (Version 2)
Quarter: 2025Q1

REPORT INFORMATION
  Report Type: Spontaneous
  Country: US (occurrence: US)
  Receive Date: 20230331
  Receipt Date: 20250301
  Transmission Date: 20250408
  Serious: No
  Sender: SANOFI AVENTIS
  Company Number: US-SA-SAC20230329000823

PATIENT
  Age: 38 Year
  Sex: Female
  Weight: 126 kg

DRUGS (7)
  1. CEREZYME [Suspect]
     Active Substance: IMIGLUCERASE
     Indication: Gaucher^s disease
     Dosage: 20 IU/KG, QOW
     Route: 042
  2. CEREZYME [Suspect]
     Active Substance: IMIGLUCERASE
     Dosage: 7600 U, QOW
     Route: 042
     Dates: start: 201609, end: 202502
  3. ALBUTEROL SULFATE [Concomitant]
     Active Substance: ALBUTEROL SULFATE
     Indication: Asthma
  4. VITAMIN D NOS [Concomitant]
     Active Substance: CHOLECALCIFEROL\ERGOCALCIFEROL
  5. STERILE WATER [Concomitant]
     Active Substance: WATER
  6. SODIUM CHLORIDE [Concomitant]
     Active Substance: SODIUM CHLORIDE
  7. SODIUM CHLORIDE [Concomitant]
     Active Substance: SODIUM CHLORIDE

REACTIONS (5)
  - Arthralgia [Unknown]
  - Urinary incontinence [Unknown]
  - Fatigue [Unknown]
  - Nasopharyngitis [Unknown]
  - Ear pain [Unknown]

NARRATIVE: CASE EVENT DATE: 20250201
